FAERS Safety Report 9507706 (Version 1)
Quarter: 2013Q3

REPORT INFORMATION
  Report Type: Spontaneous
  Country: KW (occurrence: None)
  Receive Date: 20130905
  Receipt Date: 20130905
  Transmission Date: 20140515
  Serious: Yes (Other)
  Sender: FDA-Public Use
  Company Number: MYCO20130003

PATIENT
  Age: 54 Year
  Sex: Female

DRUGS (6)
  1. MYCOPHENOLATE MOFETIL [Suspect]
  2. PREDNISOLONE [Suspect]
     Route: 048
  3. METHOTREXATE (METHOTREXATE) [Suspect]
  4. AZATHIOPRINE (AZATHIOPRINE) [Suspect]
  5. CYCLOSPORINE (CICLOSPORIN) [Suspect]
  6. ADALIMUMAB [Suspect]
     Route: 048

REACTIONS (5)
  - Myelodysplastic syndrome [None]
  - Pancytopenia [None]
  - Lower respiratory tract infection [None]
  - Scleritis [None]
  - Disease recurrence [None]
